FAERS Safety Report 16126392 (Version 2)
Quarter: 2019Q2

REPORT INFORMATION
  Report Type: Spontaneous
  Country: US (occurrence: US)
  Receive Date: 20190328
  Receipt Date: 20190410
  Transmission Date: 20190711
  Serious: Yes (Other)
  Sender: FDA-Public Use
  Company Number: US-BIOVITRUM-2019US0542

PATIENT
  Sex: Male

DRUGS (3)
  1. PROCRIT [Concomitant]
     Active Substance: ERYTHROPOIETIN
  2. KINERET [Suspect]
     Active Substance: ANAKINRA
     Route: 058
     Dates: start: 20190313
  3. PREDNISONE. [Concomitant]
     Active Substance: PREDNISONE
     Route: 048

REACTIONS (2)
  - Red blood cell count decreased [Not Recovered/Not Resolved]
  - Perineal abscess [Recovered/Resolved]
